FAERS Safety Report 15097654 (Version 4)
Quarter: 2019Q4

REPORT INFORMATION
  Report Type: Spontaneous
  Country: JP (occurrence: JP)
  Receive Date: 20180702
  Receipt Date: 20191003
  Transmission Date: 20200122
  Serious: Yes (Death)
  Sender: FDA-Public Use
  Company Number: JP-ACTELION-A-CH2018-174425

PATIENT
  Age: 1 Month
  Sex: Female

DRUGS (18)
  1. PANVITAN [Concomitant]
     Active Substance: VITAMINS
  2. URSO [Concomitant]
     Active Substance: URSODIOL
  3. PICILLIBACTA [Concomitant]
     Active Substance: AMPICILLIN SODIUM\SULBACTAM SODIUM
  4. NITRIC OXIDE. [Concomitant]
     Active Substance: NITRIC OXIDE
  5. MEROPENEM. [Concomitant]
     Active Substance: MEROPENEM
  6. TRACLEER [Suspect]
     Active Substance: BOSENTAN
     Indication: PULMONARY ARTERIAL HYPERTENSION
     Dosage: 2 MG, BID
     Route: 048
     Dates: start: 20170830, end: 20170919
  7. SOLU-CORTEF [Concomitant]
     Active Substance: HYDROCORTISONE SODIUM SUCCINATE
  8. LASIX [Concomitant]
     Active Substance: FUROSEMIDE
  9. ONEALFA [Concomitant]
     Active Substance: ALFACALCIDOL
  10. SURFACTEN [Concomitant]
  11. OXYGEN. [Concomitant]
     Active Substance: OXYGEN
  12. ADCIRCA [Concomitant]
     Active Substance: TADALAFIL
  13. KAYTWO [Concomitant]
     Active Substance: MENATETRENONE
  14. RESPIA [Concomitant]
     Active Substance: CAFFEINE
  15. EPOETIN ALFA [Concomitant]
     Active Substance: ERYTHROPOIETIN
  16. INOVAN [Concomitant]
     Active Substance: DOPAMINE HYDROCHLORIDE
  17. VANCOMYCIN HYDROCHLORIDE. [Concomitant]
     Active Substance: VANCOMYCIN HYDROCHLORIDE
  18. PRODIF [Concomitant]
     Active Substance: FOSFLUCONAZOLE

REACTIONS (3)
  - Cardiac failure [Fatal]
  - Therapy partial responder [Unknown]
  - Pulmonary hypertension [Fatal]

NARRATIVE: CASE EVENT DATE: 20170919
